FAERS Safety Report 17693858 (Version 1)
Quarter: 2020Q2

REPORT INFORMATION
  Report Type: Report from Study
  Country: None (occurrence: LU)
  Receive Date: 20200422
  Receipt Date: 20200422
  Transmission Date: 20200714
  Serious: Yes (Hospitalization, Other)
  Sender: FDA-Public Use
  Company Number: LU-ABBVIE-20K-098-3373464-00

PATIENT
  Sex: Male
  Weight: 81.9 kg

DRUGS (4)
  1. DUODOPA [Suspect]
     Active Substance: CARBIDOPA\LEVODOPA
     Dosage: MD=5ML, CD=3.4ML/HR DURING 16HRS, ED=2.5ML
     Route: 050
     Dates: start: 20190425, end: 20200420
  2. DUODOPA [Suspect]
     Active Substance: CARBIDOPA\LEVODOPA
     Dosage: MD=5ML, CD=3.2ML/HR DURING 16HRS, ED=2ML
     Route: 050
     Dates: start: 20190205, end: 20190208
  3. DUODOPA [Suspect]
     Active Substance: CARBIDOPA\LEVODOPA
     Indication: PARKINSON^S DISEASE
     Dosage: UNKNOWN DOSAGES
     Route: 050
     Dates: start: 20190128, end: 20190205
  4. DUODOPA [Suspect]
     Active Substance: CARBIDOPA\LEVODOPA
     Dosage: DOSES CONTINUOUSLY MONITORED AND ADAPTED
     Route: 050
     Dates: start: 20190208, end: 20190425

REACTIONS (4)
  - Wrong device used [Unknown]
  - Device dislocation [Unknown]
  - Osteoarthritis [Unknown]
  - Restlessness [Unknown]
